FAERS Safety Report 14554397 (Version 1)
Quarter: 2018Q1

REPORT INFORMATION
  Report Type: Spontaneous
  Country: US (occurrence: US)
  Receive Date: 20180217
  Receipt Date: 20180217
  Transmission Date: 20180509
  Serious: Yes (Hospitalization)
  Sender: FDA-Public Use
  Company Number: None

PATIENT
  Sex: Female
  Weight: 45 kg

DRUGS (6)
  1. CRESTOR OR ROSUVASTATIN CALCIUM [Concomitant]
  2. FISH OIL [Concomitant]
     Active Substance: FISH OIL
  3. VITAMIN C [Concomitant]
     Active Substance: ASCORBIC ACID
  4. NAMZARIC [Suspect]
     Active Substance: DONEPEZIL HYDROCHLORIDE\MEMANTINE HYDROCHLORIDE
     Indication: DEMENTIA
     Dosage: ?          QUANTITY:1 CAPSULE(S);?
     Route: 048
     Dates: start: 20180215, end: 20180215
  5. GLUCOSAMIN [Concomitant]
  6. AMLODIPINE BESYLATE. [Concomitant]
     Active Substance: AMLODIPINE BESYLATE

REACTIONS (11)
  - Blood pressure systolic increased [None]
  - Vomiting [None]
  - Chest discomfort [None]
  - Throat tightness [None]
  - Muscle spasms [None]
  - Feeling hot [None]
  - Dyspnoea [None]
  - Headache [None]
  - Fatigue [None]
  - Facial paralysis [None]
  - Abdominal discomfort [None]

NARRATIVE: CASE EVENT DATE: 20180216
